FAERS Safety Report 16206940 (Version 2)
Quarter: 2019Q2

REPORT INFORMATION
  Report Type: Spontaneous
  Country: FR (occurrence: FR)
  Receive Date: 20190417
  Receipt Date: 20190529
  Transmission Date: 20190711
  Serious: Yes (Other)
  Sender: FDA-Public Use
  Company Number: FR-OCTA-HAPL00419FR

PATIENT
  Age: 70 Year
  Sex: Male
  Weight: 75.3 kg

DRUGS (2)
  1. CORTANCYL [Concomitant]
     Active Substance: PREDNISONE
     Indication: VASCULITIS
     Route: 048
  2. VIALEBEX [Suspect]
     Active Substance: ALBUMIN HUMAN
     Indication: VASCULITIS
     Route: 042
     Dates: start: 20190216, end: 20190216

REACTIONS (5)
  - Oxygen saturation decreased [Recovered/Resolved]
  - Bronchospasm [Recovered/Resolved]
  - Product use in unapproved indication [Unknown]
  - Dyspnoea [Recovered/Resolved]
  - Urticaria [Recovered/Resolved]

NARRATIVE: CASE EVENT DATE: 20190216
